FAERS Safety Report 7576241-1 (Version None)
Quarter: 2011Q2

REPORT INFORMATION
  Report Type: 
  Country: None (occurrence: None)
  Receive Date: 20110628
  Receipt Date: 20110606
  Transmission Date: 20111010
  Serious: Yes (Hospitalization)
  Sender: FDA-Public Use
  Company Number: US-BAYER-201028673NA

PATIENT
  Age: 40 Year
  Sex: Female
  Weight: 85.261 kg

DRUGS (7)
  1. YAZ [Suspect]
     Dosage: UNK
     Route: 048
     Dates: start: 20070101, end: 20091025
  2. BUPROPION HCL [Concomitant]
     Dosage: UNK
     Dates: start: 20091026
  3. YASMIN [Suspect]
     Indication: POLYCYSTIC OVARIES
     Dosage: UNK
     Dates: start: 20030101
  4. WELLBUTRIN XL [Concomitant]
     Indication: DEPRESSION
     Dosage: UNK
     Route: 048
     Dates: start: 20040101
  5. IBUPROFEN [Concomitant]
  6. YAZ [Suspect]
  7. METFORMIN HCL [Concomitant]
     Dosage: UNK
     Route: 048
     Dates: start: 20080101

REACTIONS (8)
  - CHOLELITHIASIS [None]
  - CHOLECYSTITIS CHRONIC [None]
  - ABDOMINAL PAIN [None]
  - NAUSEA [None]
  - CHOLECYSTITIS [None]
  - CHOLECYSTITIS ACUTE [None]
  - ABDOMINAL PAIN UPPER [None]
  - VOMITING [None]
